FAERS Safety Report 17336080 (Version 1)
Quarter: 2020Q1

REPORT INFORMATION
  Report Type: Spontaneous
  Country: FR (occurrence: FR)
  Receive Date: 20200128
  Receipt Date: 20200128
  Transmission Date: 20200409
  Serious: Yes (Other)
  Sender: FDA-Public Use
  Company Number: FR-PFIZER INC-2020033854

PATIENT
  Age: 65 Year
  Sex: Male

DRUGS (5)
  1. PROPOFOL LIPURO [Suspect]
     Active Substance: PROPOFOL
     Indication: GENERAL ANAESTHESIA
     Dosage: NOT PROVIDED
     Route: 042
     Dates: start: 20190818, end: 20190818
  2. REMIFENTANIL [Suspect]
     Active Substance: REMIFENTANIL
     Indication: GENERAL ANAESTHESIA
     Dosage: NOT PROVIDED
     Route: 042
     Dates: start: 20190818, end: 20190818
  3. KETAMINE [Suspect]
     Active Substance: KETAMINE
     Indication: GENERAL ANAESTHESIA
     Dosage: NOT PROVIDED
     Route: 042
     Dates: start: 20190818, end: 20190818
  4. LIDOCAINE. [Suspect]
     Active Substance: LIDOCAINE
     Indication: GENERAL ANAESTHESIA
     Dosage: NOT PROVIDED
     Route: 042
     Dates: start: 20190818, end: 20190818
  5. ROCURONIUM BROMIDE. [Suspect]
     Active Substance: ROCURONIUM BROMIDE
     Indication: GENERAL ANAESTHESIA
     Dosage: NOT PROVIDED
     Route: 042
     Dates: start: 20190818, end: 20190818

REACTIONS (1)
  - Urticaria [Recovered/Resolved]

NARRATIVE: CASE EVENT DATE: 20190818
